FAERS Safety Report 7731716-7 (Version None)
Quarter: 2011Q3

REPORT INFORMATION
  Report Type: 
  Country: None (occurrence: None)
  Receive Date: 20110906
  Receipt Date: 20110826
  Transmission Date: 20111222
  Serious: Yes (Other)
  Sender: FDA-Public Use
  Company Number: PHHY2011KR77147

PATIENT

DRUGS (3)
  1. LYRICA [Suspect]
     Dosage: 75 MG, BID
  2. NEURONTIN [Suspect]
     Indication: TRIGEMINAL NEURALGIA
     Dosage: UNK UKN, UNK
  3. TEGRETOL [Suspect]
     Indication: TRIGEMINAL NEURALGIA
     Dosage: UNK UKN, UNK

REACTIONS (7)
  - HERPES ZOSTER [None]
  - FACE OEDEMA [None]
  - TREMOR [None]
  - DYSPEPSIA [None]
  - SOMNOLENCE [None]
  - PAIN [None]
  - STUPOR [None]
